FAERS Safety Report 23523750 (Version 2)
Quarter: 2024Q1

REPORT INFORMATION
  Report Type: Spontaneous
  Country: JP (occurrence: JP)
  Receive Date: 20240214
  Receipt Date: 20240330
  Transmission Date: 20240410
  Serious: Yes (Life-Threatening, Hospitalization, Other)
  Sender: FDA-Public Use
  Company Number: JP-KYOWAKIRIN-2023KK020297

PATIENT
  Age: 8 Decade
  Sex: Male

DRUGS (11)
  1. ROMIPLOSTIM [Suspect]
     Active Substance: ROMIPLOSTIM
     Indication: Aplastic anaemia
     Dosage: 1 MILLIGRAM/SQ. METER, QWK (1 MG/M2, 1X/WEEK, ROMIPLATE FOR S.C. INJECTION WAS STARTED AT 1 MICROGRA
     Route: 058
     Dates: start: 20230628, end: 20230713
  2. ROMIPLOSTIM [Suspect]
     Active Substance: ROMIPLOSTIM
     Dosage: 20 MILLIGRAM/SQ. METER
     Route: 058
     Dates: start: 20230714, end: 20230718
  3. ROMIPLOSTIM [Suspect]
     Active Substance: ROMIPLOSTIM
     Dosage: 3 MILLIGRAM/SQ. METER
     Route: 058
     Dates: start: 20230719, end: 20230725
  4. ROMIPLOSTIM [Suspect]
     Active Substance: ROMIPLOSTIM
     Dosage: 4 MILLIGRAM/SQ. METER
     Route: 058
     Dates: start: 20230726, end: 20230805
  5. ROMIPLOSTIM [Suspect]
     Active Substance: ROMIPLOSTIM
     Dosage: 5 MILLIGRAM/SQ. METER
     Route: 058
     Dates: start: 20230806, end: 20230808
  6. ROMIPLOSTIM [Suspect]
     Active Substance: ROMIPLOSTIM
     Dosage: 6 MILLIGRAM/SQ. METER
     Route: 058
     Dates: start: 20230809, end: 20230815
  7. ROMIPLOSTIM [Suspect]
     Active Substance: ROMIPLOSTIM
     Dosage: 7 MILLIGRAM/SQ. METER
     Route: 058
     Dates: start: 20230816, end: 20230822
  8. ROMIPLOSTIM [Suspect]
     Active Substance: ROMIPLOSTIM
     Dosage: 8 MILLIGRAM/SQ. METER
     Route: 058
     Dates: start: 20230823, end: 20230829
  9. ROMIPLOSTIM [Suspect]
     Active Substance: ROMIPLOSTIM
     Dosage: 10 MILLIGRAM/SQ. METER
     Route: 058
     Dates: start: 20230830, end: 20231025
  10. ROMIPLOSTIM [Suspect]
     Active Substance: ROMIPLOSTIM
     Dosage: 14 MILLIGRAM/SQ. METER
     Route: 058
     Dates: start: 20231122, end: 20231226
  11. ROMIPLOSTIM [Suspect]
     Active Substance: ROMIPLOSTIM
     Dosage: 20 MILLIGRAM/SQ. METER, BASICALLY, THE DOSE WAS GRADUALLY INCREASED BY 1 MICROGRAM AT 1-WEEK INTERVA
     Route: 058
     Dates: start: 20231227, end: 20240124

REACTIONS (8)
  - Cardio-respiratory arrest [Recovering/Resolving]
  - Cardiac failure [Recovering/Resolving]
  - Cardiac failure [Recovering/Resolving]
  - Haemodialysis [Unknown]
  - Off label use [Unknown]
  - Off label use [Unknown]
  - Product use issue [Unknown]
  - Therapeutic product effect incomplete [Unknown]

NARRATIVE: CASE EVENT DATE: 20231003
